FAERS Safety Report 5376540-8 (Version None)
Quarter: 2007Q2

REPORT INFORMATION
  Report Type: 
  Country: None (occurrence: None)
  Receive Date: 20070629
  Receipt Date: 20070613
  Transmission Date: 20071010
  Serious: Yes (Life-Threatening, Hospitalization)
  Sender: FDA-Public Use
  Company Number: SP01271

PATIENT
  Age: 44 Year
  Sex: Male

DRUGS (2)
  1. COLAZAL [Suspect]
     Indication: COLITIS ULCERATIVE
     Dosage: 3 GM (1.5 GM, 2 IN 1 D), ORAL
     Route: 048
     Dates: start: 20040101, end: 20070531
  2. PARACETAMOL [Concomitant]

REACTIONS (2)
  - LEISHMANIASIS [None]
  - PANCYTOPENIA [None]
